FAERS Safety Report 14544819 (Version 1)
Quarter: 2018Q1

REPORT INFORMATION
  Report Type: Spontaneous
  Country: FR (occurrence: FR)
  Receive Date: 20180217
  Receipt Date: 20180217
  Transmission Date: 20180509
  Serious: Yes (Other)
  Sender: FDA-Public Use
  Company Number: FR-AUROBINDO-AUR-APL-2018-007316

PATIENT
  Age: 65 Year
  Sex: Female

DRUGS (2)
  1. RIBAVIRIN FILM COATED TABLETS [Suspect]
     Active Substance: RIBAVIRIN
     Indication: CHRONIC HEPATITIS C
     Dosage: UNK ()
     Route: 065
     Dates: start: 2016
  2. SOVALDI [Suspect]
     Active Substance: SOFOSBUVIR
     Indication: CHRONIC HEPATITIS C
     Dosage: UNK ()
     Route: 065
     Dates: start: 2016

REACTIONS (6)
  - Fatigue [Recovering/Resolving]
  - Cough [Recovered/Resolved]
  - Angiotensin converting enzyme increased [Unknown]
  - Weight decreased [Recovering/Resolving]
  - Hypercalcaemia [Unknown]
  - Sarcoidosis [Recovering/Resolving]

NARRATIVE: CASE EVENT DATE: 2016
